FAERS Safety Report 9017003 (Version 3)
Quarter: 2013Q1

REPORT INFORMATION
  Report Type: Report from Study
  Country: US (occurrence: US)
  Receive Date: 20130117
  Receipt Date: 20130128
  Transmission Date: 20140127
  Serious: Yes (Death)
  Sender: FDA-Public Use
  Company Number: US-GENZYME-LEUK-1000289

PATIENT
  Age: 61 Year
  Sex: Female
  Weight: 58.9 kg

DRUGS (5)
  1. LEUKINE [Suspect]
     Indication: MALIGNANT MELANOMA
     Dosage: 250 MCG/DAY ON DAYS 1-14 (CYCLE 1-4)
     Route: 058
     Dates: start: 20110427, end: 20110920
  2. IPILIMUMAB [Suspect]
     Indication: MALIGNANT MELANOMA
     Dosage: 10 MG/KG, IV OVER 90 MIN ON DAY 1 (CYCLES 1-4)
     Route: 042
     Dates: start: 20110427, end: 20110920
  3. TPN [Concomitant]
     Indication: ABDOMINAL PAIN
     Dosage: UNK
     Route: 065
  4. DILAUDID [Concomitant]
     Indication: ABDOMINAL PAIN
     Dosage: UNK
     Route: 042
  5. CHOLESTYRAMINE [Concomitant]
     Indication: ABDOMINAL PAIN
     Dosage: UNK
     Route: 065

REACTIONS (1)
  - Malignant neoplasm progression [Fatal]
